FAERS Safety Report 4435606-7 (Version None)
Quarter: 2004Q3

REPORT INFORMATION
  Report Type: 
  Country: None (occurrence: None)
  Receive Date: 20040726
  Receipt Date: 20040510
  Transmission Date: 20050211
  Serious: No
  Sender: FDA-Public Use
  Company Number: USA040566615

PATIENT
  Age: 74 Year
  Sex: Female

DRUGS (3)
  1. FORTEO [Suspect]
     Indication: OSTEOPOROSIS
     Dates: start: 20040429
  2. BENICAR (BENICAR) [Concomitant]
  3. ASPIRIN [Concomitant]

REACTIONS (1)
  - INJECTION SITE HAEMORRHAGE [None]
